FAERS Safety Report 5727378-0 (Version None)
Quarter: 2008Q2

REPORT INFORMATION
  Report Type: 
  Country: None (occurrence: None)
  Receive Date: 20080505
  Receipt Date: 20080505
  Transmission Date: 20081010
  Serious: Yes (Life-Threatening, Hospitalization)
  Sender: FDA-Public Use
  Company Number: None

PATIENT
  Age: 71 Year
  Sex: Male
  Weight: 74.8435 kg

DRUGS (4)
  1. HEPARIN [Suspect]
     Indication: ANTICOAGULANT THERAPY
     Dates: start: 20080313, end: 20080316
  2. HEPARIN [Suspect]
     Indication: THROMBOSIS
     Dates: start: 20080313, end: 20080316
  3. HEPARIN [Suspect]
     Indication: ANTICOAGULANT THERAPY
     Dates: start: 20080321, end: 20080331
  4. HEPARIN [Suspect]
     Indication: THROMBOSIS
     Dates: start: 20080321, end: 20080331

REACTIONS (7)
  - ANOXIC ENCEPHALOPATHY [None]
  - CARDIO-RESPIRATORY ARREST [None]
  - CHEST PAIN [None]
  - HYPOAESTHESIA [None]
  - POST PROCEDURAL COMPLICATION [None]
  - PULMONARY EMBOLISM [None]
  - THROMBOSIS [None]
